FAERS Safety Report 15316424 (Version 1)
Quarter: 2018Q3

REPORT INFORMATION
  Report Type: Spontaneous
  Country: RU (occurrence: RU)
  Receive Date: 20180824
  Receipt Date: 20180824
  Transmission Date: 20181010
  Serious: Yes (Death)
  Sender: FDA-Public Use
  Company Number: RU-PFIZER INC-2018337414

PATIENT
  Age: 36 Year
  Sex: Female

DRUGS (2)
  1. BOSULIF [Suspect]
     Active Substance: BOSUTINIB MONOHYDRATE
     Indication: CHRONIC MYELOID LEUKAEMIA
     Dosage: 500 MG, 1X/DAY
     Route: 048
     Dates: start: 20180724
  2. FRAXIPARINE [Concomitant]
     Active Substance: NADROPARIN CALCIUM
     Dosage: UNK

REACTIONS (1)
  - Pulmonary embolism [Fatal]

NARRATIVE: CASE EVENT DATE: 20180806
